FAERS Safety Report 11302905 (Version 1)
Quarter: 2015Q3

REPORT INFORMATION
  Report Type: Spontaneous
  Country: US (occurrence: None)
  Receive Date: 20150723
  Receipt Date: 20150723
  Transmission Date: 20151125
  Serious: No
  Sender: FDA-Public Use
  Company Number: None

PATIENT
  Age: 62 Year
  Sex: Male

DRUGS (1)
  1. SPRYCEL [Suspect]
     Active Substance: DASATINIB
     Dosage: STRENGTH: 100
     Dates: start: 20150415, end: 20150514

REACTIONS (2)
  - Fatigue [None]
  - Laboratory test abnormal [None]

NARRATIVE: CASE EVENT DATE: 20150514
